FAERS Safety Report 8791641 (Version 2)
Quarter: 2012Q4

REPORT INFORMATION
  Report Type: 
  Country: JP (occurrence: JP)
  Receive Date: 20120918
  Receipt Date: 20121105
  Transmission Date: 20130627
  Serious: Yes (Other)
  Sender: FDA-Public Use
  Company Number: PHHY2012JP080592

PATIENT
  Age: 15 Year
  Sex: Male

DRUGS (9)
  1. TEGRETOL [Suspect]
     Indication: CONVULSION
     Dosage: 0.48 g,daily
     Route: 048
  2. EPINASTINE [Concomitant]
     Dosage: 20 mg, UNK
     Route: 048
  3. ZOVIRAX [Concomitant]
     Indication: HERPES ZOSTER
     Route: 048
     Dates: start: 20120705
  4. VALTREX [Concomitant]
     Indication: HERPES ZOSTER
     Dosage: UNK UKN, UNK
  5. ZITHROMAC [Concomitant]
     Indication: NASOPHARYNGITIS
     Dosage: 500 mg, UNK
  6. ASVERIN (TIPEPIDINE HIBENZATE) [Concomitant]
     Indication: NASOPHARYNGITIS
     Dosage: 60 mg, UNK
  7. MUCODYNE [Concomitant]
     Indication: NASOPHARYNGITIS
     Dosage: 1500 mg, UNK
  8. CALONAL [Concomitant]
     Indication: NASOPHARYNGITIS
     Dosage: UNK UKN, UNK
     Route: 048
  9. PRANLUKAST [Concomitant]
     Dosage: 225 mg, UNK

REACTIONS (5)
  - Herpes zoster [Recovering/Resolving]
  - Shock [Recovered/Resolved]
  - Pallor [Recovered/Resolved]
  - Feeling cold [Unknown]
  - Nasopharyngitis [Unknown]
